FAERS Safety Report 5925299-1 (Version None)
Quarter: 2008Q4

REPORT INFORMATION
  Report Type: 
  Country: None (occurrence: None)
  Receive Date: 20081020
  Receipt Date: 20081020
  Transmission Date: 20090506
  Serious: Yes (Life-Threatening, Hospitalization)
  Sender: FDA-Public Use
  Company Number: None

PATIENT
  Age: 8 Year
  Sex: Male
  Weight: 48.5349 kg

DRUGS (1)
  1. CLINDAMYCIN HCL [Suspect]
     Dosage: 300MG 3 TIMES DAILY PO
     Route: 048
     Dates: start: 20070720, end: 20070830

REACTIONS (11)
  - CARDIAC DISORDER [None]
  - DEHYDRATION [None]
  - DIARRHOEA [None]
  - GALLBLADDER PAIN [None]
  - HEPATIC PAIN [None]
  - JAUNDICE [None]
  - KAWASAKI'S DISEASE [None]
  - PYREXIA [None]
  - RASH [None]
  - SKIN EXFOLIATION [None]
  - VOMITING [None]
